FAERS Safety Report 20935819 (Version 1)
Quarter: 2022Q2

REPORT INFORMATION
  Report Type: Other
  Country: US (occurrence: None)
  Receive Date: 20220609
  Receipt Date: 20220609
  Transmission Date: 20220720
  Serious: Yes (Hospitalization)
  Sender: FDA-Public Use
  Company Number: US-ROCHE-3108898

PATIENT
  Age: 34 Year
  Sex: Male
  Weight: 93.070 kg

DRUGS (2)
  1. ENSPRYNG [Suspect]
     Active Substance: SATRALIZUMAB-MWGE
     Indication: Neuromyelitis optica spectrum disorder
     Dosage: INJECT 120MG SQ AT WEEKS 0, 2, AND 4, INJECT 120MG EVERY 4 WEEKS
     Route: 058
     Dates: start: 20220518
  2. ENSPRYNG [Suspect]
     Active Substance: SATRALIZUMAB-MWGE
     Indication: Demyelination

REACTIONS (4)
  - Urinary tract infection bacterial [Not Recovered/Not Resolved]
  - Sepsis [Unknown]
  - Chest discomfort [Unknown]
  - Cough [Unknown]

NARRATIVE: CASE EVENT DATE: 20220527
